FAERS Safety Report 4333835-4 (Version None)
Quarter: 2004Q2

REPORT INFORMATION
  Report Type: 
  Country: None (occurrence: None)
  Receive Date: 20040402
  Receipt Date: 20040329
  Transmission Date: 20050107
  Serious: Yes (Death, Hospitalization, Other)
  Sender: FDA-Public Use
  Company Number: USA-2004-0012553

PATIENT
  Age: 40 Year
  Sex: Female
  Weight: 71.7 kg

DRUGS (3)
  1. OXYCONTIN [Suspect]
     Indication: PAIN
     Dosage: SEE IMAGE
     Dates: start: 20010101, end: 20010129
  2. OXYCONTIN [Suspect]
     Indication: PAIN
     Dosage: SEE IMAGE
     Dates: start: 20010129
  3. PROZAC [Concomitant]

REACTIONS (16)
  - ANGIOPATHY [None]
  - CEREBELLAR INFARCTION [None]
  - CEREBRAL ISCHAEMIA [None]
  - COMA [None]
  - DECUBITUS ULCER [None]
  - DRUG TOXICITY [None]
  - EYE ROLLING [None]
  - HEPATIC CONGESTION [None]
  - LEUKOENCEPHALOPATHY [None]
  - NEPHROSCLEROSIS [None]
  - OVERDOSE [None]
  - PALLOR [None]
  - PNEUMONIA [None]
  - SKIN ULCER [None]
  - SOMNOLENCE [None]
  - THERMAL BURN [None]
